FAERS Safety Report 9848508 (Version 1)
Quarter: 2014Q1

REPORT INFORMATION
  Report Type: Spontaneous
  Country: US (occurrence: None)
  Receive Date: 20140127
  Receipt Date: 20140127
  Transmission Date: 20141002
  Serious: Yes (Disabling)
  Sender: FDA-Public Use
  Company Number: None

PATIENT
  Age: 70 Year
  Sex: Female
  Weight: 100.25 kg

DRUGS (2)
  1. OMEPRAZOLE [Suspect]
     Indication: GASTROOESOPHAGEAL REFLUX DISEASE
     Dosage: 1 CAPSULE EACH MORNING ONCE DAILY TAKEN BY MOUTH
     Route: 048
     Dates: start: 20140121, end: 20140122
  2. OMEPRAZOLE [Suspect]
     Indication: OROPHARYNGEAL PAIN
     Dosage: 1 CAPSULE EACH MORNING ONCE DAILY TAKEN BY MOUTH
     Route: 048
     Dates: start: 20140121, end: 20140122

REACTIONS (1)
  - Hypersensitivity [None]
